FAERS Safety Report 17841418 (Version 1)
Quarter: 2020Q2

REPORT INFORMATION
  Report Type: Spontaneous
  Country: US (occurrence: US)
  Receive Date: 20200529
  Receipt Date: 20200529
  Transmission Date: 20200714
  Serious: Yes (Other)
  Sender: FDA-Public Use
  Company Number: US-TEVA-2020-US-1241096

PATIENT
  Age: 72 Year
  Sex: Male

DRUGS (2)
  1. SOTALOL HYDROCHLORIDE. [Suspect]
     Active Substance: SOTALOL HYDROCHLORIDE
     Dosage: SPLIT THE 80 MG TABLET IN HALF AND TAKE HALF IN THE MORNING AND HALF IN THE EVENING
     Route: 065
     Dates: start: 202002, end: 20200511
  2. SOTALOL HYDROCHLORIDE. [Suspect]
     Active Substance: SOTALOL HYDROCHLORIDE
     Dosage: SPLITTING THE 80 MG TABLET AND TAKING ONE HALF IN THE MORNING AND THE OTHER HALF IN THE EVENING
     Route: 065
     Dates: start: 20200516

REACTIONS (6)
  - Arthralgia [Not Recovered/Not Resolved]
  - Memory impairment [Unknown]
  - Lung disorder [Unknown]
  - Myocardial infarction [Unknown]
  - Pyrexia [Unknown]
  - Bronchitis [Unknown]

NARRATIVE: CASE EVENT DATE: 20200315
